FAERS Safety Report 4721605-4 (Version None)
Quarter: 2005Q3

REPORT INFORMATION
  Report Type: 
  Country: None (occurrence: None)
  Receive Date: 20050721
  Receipt Date: 20041223
  Transmission Date: 20060218
  Serious: Yes (Other)
  Sender: FDA-Public Use
  Company Number: US-BRISTOL-MYERS SQUIBB COMPANY-12806584

PATIENT
  Age: 48 Year
  Sex: Female
  Weight: 91 kg

DRUGS (2)
  1. COUMADIN [Suspect]
     Indication: PULMONARY THROMBOSIS
     Route: 048
  2. NEURONTIN [Concomitant]

REACTIONS (4)
  - GINGIVAL BLEEDING [None]
  - PULMONARY THROMBOSIS [None]
  - THROMBOSIS [None]
  - TREATMENT NONCOMPLIANCE [None]
